FAERS Safety Report 8437728-2 (Version None)
Quarter: 2012Q2

REPORT INFORMATION
  Report Type: 
  Country: None (occurrence: None)
  Receive Date: 20120614
  Receipt Date: 20120306
  Transmission Date: 20120825
  Serious: No
  Sender: FDA-Public Use
  Company Number: US-GLAXOSMITHKLINE-A0968725A

PATIENT
  Age: 53 Year
  Sex: Female

DRUGS (1)
  1. NICORETTE (MINT) [Suspect]
     Indication: EX-TOBACCO USER
     Route: 002
     Dates: start: 20120306, end: 20120306

REACTIONS (5)
  - ORAL DISCOMFORT [None]
  - MALAISE [None]
  - THROAT IRRITATION [None]
  - VOMITING [None]
  - GASTROOESOPHAGEAL REFLUX DISEASE [None]
